FAERS Safety Report 10791618 (Version 1)
Quarter: 2015Q1

REPORT INFORMATION
  Report Type: Spontaneous
  Country: US (occurrence: US)
  Receive Date: 20150213
  Receipt Date: 20150213
  Transmission Date: 20150721
  Serious: Yes (Other)
  Sender: FDA-Public Use
  Company Number: US-ACCORD-028617

PATIENT
  Age: 40 Year
  Sex: Female

DRUGS (1)
  1. TOPIRAMATE. [Suspect]
     Active Substance: TOPIRAMATE
     Indication: MIGRAINE WITHOUT AURA

REACTIONS (5)
  - Aphasia [Recovering/Resolving]
  - Off label use [Unknown]
  - Disturbance in attention [Recovering/Resolving]
  - Visual perseveration [Recovering/Resolving]
  - Memory impairment [Recovering/Resolving]
